FAERS Safety Report 6826006-0 (Version None)
Quarter: 2010Q3

REPORT INFORMATION
  Report Type: 
  Country: None (occurrence: None)
  Receive Date: 20100707
  Receipt Date: 20100707
  Transmission Date: 20110219
  Serious: No
  Sender: FDA-Public Use
  Company Number: None

PATIENT

DRUGS (3)
  1. GEODON [Suspect]
  2. RISPERIDONE [Suspect]
  3. COGENTIN [Suspect]

REACTIONS (23)
  - AGEUSIA [None]
  - AGITATION [None]
  - ANGER [None]
  - BRUXISM [None]
  - CONFUSIONAL STATE [None]
  - DROOLING [None]
  - DYSKINESIA [None]
  - FEAR [None]
  - FEELING ABNORMAL [None]
  - FOOD CRAVING [None]
  - GAIT DISTURBANCE [None]
  - HALLUCINATION [None]
  - HEADACHE [None]
  - MUSCLE RIGIDITY [None]
  - MUSCLE SPASMS [None]
  - MUSCULOSKELETAL STIFFNESS [None]
  - PAIN [None]
  - POLYDIPSIA [None]
  - RASH [None]
  - TOBACCO USER [None]
  - TREMOR [None]
  - VICTIM OF ABUSE [None]
  - VISION BLURRED [None]
